FAERS Safety Report 25805421 (Version 1)
Quarter: 2025Q3

REPORT INFORMATION
  Report Type: Spontaneous
  Country: US (occurrence: US)
  Receive Date: 20250916
  Receipt Date: 20250916
  Transmission Date: 20251020
  Serious: Yes (Death)
  Sender: AMGEN
  Company Number: US-AMGEN-USASP2025183445

PATIENT

DRUGS (2)
  1. TARLATAMAB [Suspect]
     Active Substance: TARLATAMAB
     Indication: Thyroid cancer
     Route: 065
  2. TARLATAMAB [Suspect]
     Active Substance: TARLATAMAB
     Indication: Off label use

REACTIONS (2)
  - Adverse drug reaction [Fatal]
  - Off label use [Unknown]
